FAERS Safety Report 13635835 (Version 1)
Quarter: 2017Q2

REPORT INFORMATION
  Report Type: Spontaneous
  Country: US (occurrence: US)
  Receive Date: 20170531
  Receipt Date: 20170531
  Transmission Date: 20170830
  Serious: No
  Sender: FDA-Public Use
  Company Number: US-ASTELLAS-1744715

PATIENT
  Sex: Female

DRUGS (5)
  1. SYNTHROID [Concomitant]
     Active Substance: LEVOTHYROXINE SODIUM
  2. SINEMET [Concomitant]
     Active Substance: CARBIDOPA\LEVODOPA
  3. TARCEVA [Suspect]
     Active Substance: ERLOTINIB HYDROCHLORIDE
     Indication: LUNG NEOPLASM MALIGNANT
     Route: 048
     Dates: start: 20150715
  4. MIRALAX [Concomitant]
     Active Substance: POLYETHYLENE GLYCOL 3350
  5. NEURONTIN [Concomitant]
     Active Substance: GABAPENTIN

REACTIONS (7)
  - Epistaxis [Unknown]
  - Saliva altered [Unknown]
  - Glossodynia [Unknown]
  - Nausea [Unknown]
  - Constipation [Not Recovered/Not Resolved]
  - Eye discharge [Unknown]
  - Hypertrichosis [Unknown]
